FAERS Safety Report 24754759 (Version 1)
Quarter: 2024Q4

REPORT INFORMATION
  Report Type: Spontaneous
  Country: GB (occurrence: GB)
  Receive Date: 20241219
  Receipt Date: 20241219
  Transmission Date: 20250115
  Serious: Yes (Other)
  Sender: SAMSUNG BIOEPIS
  Company Number: GB-SAMSUNG BIOEPIS-SB-2024-38096

PATIENT
  Age: 40 Year
  Sex: Female

DRUGS (2)
  1. IMRALDI [Suspect]
     Active Substance: ADALIMUMAB
     Indication: Colitis ulcerative
     Dosage: 40 MG/0.8 ML;
     Route: 058
  2. BOTULINUM TOXIN TYPE A [Suspect]
     Active Substance: BOTULINUM TOXIN TYPE A
     Indication: Product used for unknown indication
     Dosage: 2 X 125 UNIT;

REACTIONS (6)
  - Hypoaesthesia [Unknown]
  - Paralysis [Unknown]
  - Palpitations [Unknown]
  - Muscular weakness [Unknown]
  - Panic attack [Unknown]
  - Hypersensitivity [Unknown]
